FAERS Safety Report 11665516 (Version 2)
Quarter: 2015Q4

REPORT INFORMATION
  Report Type: Other
  Country: US (occurrence: US)
  Receive Date: 20151027
  Receipt Date: 20151028
  Transmission Date: 20160304
  Serious: Yes (Other)
  Sender: FDA-Public Use
  Company Number: US-PURDUE-USA-2015-0127014

PATIENT
  Age: 34 Year
  Sex: Male

DRUGS (1)
  1. NON-PMN SENNOSIDES [Suspect]
     Active Substance: SENNOSIDES
     Indication: PRODUCT USED FOR UNKNOWN INDICATION
     Route: 065

REACTIONS (4)
  - Intracranial venous sinus thrombosis [Recovering/Resolving]
  - Cerebral venous thrombosis [Recovering/Resolving]
  - Status epilepticus [None]
  - Coagulation factor VIII level increased [Recovering/Resolving]
